FAERS Safety Report 14029627 (Version 1)
Quarter: 2017Q4

REPORT INFORMATION
  Report Type: Report from Study
  Country: US (occurrence: US)
  Receive Date: 20171002
  Receipt Date: 20171002
  Transmission Date: 20180321
  Serious: Yes (Other)
  Sender: FDA-Public Use
  Company Number: US-JAZZ-2017-US-010599

PATIENT
  Age: 12 Year
  Sex: Male

DRUGS (2)
  1. XYREM [Suspect]
     Active Substance: SODIUM OXYBATE
     Indication: NARCOLEPSY
     Dosage: 2.25 G, BID
     Route: 048
     Dates: start: 20170810, end: 2017
  2. XYREM [Suspect]
     Active Substance: SODIUM OXYBATE
     Indication: CATAPLEXY

REACTIONS (6)
  - Somnolence [Unknown]
  - Condition aggravated [Unknown]
  - Cataplexy [Unknown]
  - Gastrointestinal disorder [Unknown]
  - Dyspnoea exertional [Unknown]
  - Headache [Unknown]

NARRATIVE: CASE EVENT DATE: 201708
